FAERS Safety Report 5026506-2 (Version None)
Quarter: 2006Q2

REPORT INFORMATION
  Report Type: 
  Country: None (occurrence: None)
  Receive Date: 20060615
  Receipt Date: 19960701
  Transmission Date: 20061013
  Serious: Yes (Hospitalization)
  Sender: FDA-Public Use
  Company Number: B027400

PATIENT
  Age: 79 Year
  Sex: Female

DRUGS (9)
  1. FUNGIZONE [Suspect]
     Indication: MYCOSIS FUNGOIDES
     Route: 048
     Dates: start: 19960520, end: 19960530
  2. PREVISCAN [Suspect]
     Dates: start: 19960420, end: 19960530
  3. RILMENIDINE [Concomitant]
     Dates: start: 19951115, end: 19960530
  4. FUROSEMIDE [Concomitant]
     Dates: start: 19950115
  5. AMIODARONE [Concomitant]
     Dates: start: 19960420
  6. LORAZEPAM [Concomitant]
  7. POTASSIUM CHLORIDE [Concomitant]
  8. CAPTOPRIL [Concomitant]
  9. PRAZOSIN HCL [Concomitant]
     Dates: start: 19960115, end: 19960530

REACTIONS (2)
  - ERYTHEMA [None]
  - PURPURA [None]
